FAERS Safety Report 9859478 (Version 3)
Quarter: 2014Q2

REPORT INFORMATION
  Report Type: Spontaneous
  Country: GB (occurrence: GB)
  Receive Date: 20140131
  Receipt Date: 20140421
  Transmission Date: 20141212
  Serious: Yes (Hospitalization)
  Sender: FDA-Public Use
  Company Number: GB-WATSON-2014-01051

PATIENT
  Age: 72 Year
  Sex: Female

DRUGS (14)
  1. ALLOPURINOL (UNKNOWN) [Suspect]
     Indication: GOUT
     Dosage: 300 MG, DAILY
     Route: 048
     Dates: start: 20131101, end: 20140110
  2. LANSOPRAZOLE (UNKNOWN) [Suspect]
     Indication: PRODUCT USED FOR UNKNOWN INDICATION
     Dosage: 30 MG, DAILY
     Route: 048
     Dates: start: 20131101, end: 20140110
  3. ARANESP [Suspect]
     Indication: NEPHROGENIC ANAEMIA
     Dosage: 100 ?G, 1/WEEK
     Route: 058
     Dates: start: 20131014
  4. NOVOMIX [Concomitant]
     Indication: PRODUCT USED FOR UNKNOWN INDICATION
     Dosage: 42 IU, BID
     Route: 058
  5. INDAPAMIDE [Concomitant]
     Indication: PRODUCT USED FOR UNKNOWN INDICATION
     Dosage: 2.5 MG, DAILY
     Route: 048
  6. RAMIPRIL [Concomitant]
     Indication: PRODUCT USED FOR UNKNOWN INDICATION
     Dosage: 2.5 MG, DAILY
     Route: 048
  7. ASPIRIN [Concomitant]
     Indication: PRODUCT USED FOR UNKNOWN INDICATION
     Dosage: 75 MG, DAILY
     Route: 048
  8. AMINOPHYLLINE [Concomitant]
     Indication: PRODUCT USED FOR UNKNOWN INDICATION
     Dosage: 225 MG, BID
     Route: 048
  9. AMINOPHYLLINE [Concomitant]
     Dosage: UNK, BID
     Route: 058
  10. SIMVASTATIN [Concomitant]
     Indication: PRODUCT USED FOR UNKNOWN INDICATION
     Dosage: 40 MG, QPM
     Route: 048
  11. DOSULEPIN [Concomitant]
     Indication: PRODUCT USED FOR UNKNOWN INDICATION
     Dosage: 75 MG, QPM
     Route: 048
  12. SERETIDE [Concomitant]
     Indication: PRODUCT USED FOR UNKNOWN INDICATION
     Dosage: 2 DF, BID (TWO PUFFS, TWICE DAILY; INHALER- 250 EVOHALER)
     Route: 055
  13. SALBUTAMOL [Concomitant]
     Indication: PRODUCT USED FOR UNKNOWN INDICATION
     Dosage: 2 DF, PRN (100MCG INHALER- 2PUFFS AS NECESSARY)
     Route: 055
  14. FUROSEMIDE [Concomitant]
     Indication: FLUID OVERLOAD
     Dosage: 80 MG, DAILY
     Route: 048

REACTIONS (9)
  - Dermatitis exfoliative [Recovered/Resolved]
  - Lymphocytic infiltration [Unknown]
  - Pruritus generalised [Unknown]
  - Rash erythematous [Unknown]
  - Parakeratosis [Unknown]
  - Wheezing [Unknown]
  - Skin exfoliation [Unknown]
  - Eczema [Unknown]
  - Drug eruption [Unknown]
